FAERS Safety Report 24078834 (Version 1)
Quarter: 2024Q3

REPORT INFORMATION
  Report Type: Spontaneous
  Country: DE (occurrence: DE)
  Receive Date: 20240711
  Receipt Date: 20240711
  Transmission Date: 20241017
  Serious: Yes (Hospitalization)
  Sender: SAMSUNG BIOEPIS
  Company Number: DE-SAMSUNG BIOEPIS-SB-2024-20353

PATIENT
  Sex: Female
  Weight: 65 kg

DRUGS (9)
  1. TRASTUZUMAB [Suspect]
     Active Substance: TRASTUZUMAB
     Indication: Adenocarcinoma gastric
     Dosage: DAY1
     Route: 042
     Dates: start: 20240212
  2. TRASTUZUMAB [Suspect]
     Active Substance: TRASTUZUMAB
     Dosage: DAY 22/D43 PRE AND POST OP
     Route: 042
  3. TRASTUZUMAB [Suspect]
     Active Substance: TRASTUZUMAB
     Route: 042
  4. PEMBROLIZUMAB [Suspect]
     Active Substance: PEMBROLIZUMAB
     Indication: Adenocarcinoma gastric
     Dosage: 65MG.M2; D1/D15/D29 AND D43 PRE AND POST OP
     Route: 042
     Dates: start: 20240212
  5. PEMBROLIZUMAB [Suspect]
     Active Substance: PEMBROLIZUMAB
     Route: 042
  6. OXALIPLATIN [Suspect]
     Active Substance: OXALIPLATIN
     Indication: Adenocarcinoma gastric
     Dosage: 65MG.M2; D1/D15/D29 AND D43 PRE AND POST OP
     Route: 042
     Dates: start: 20240212
  7. LEUCOVORIN [Suspect]
     Active Substance: LEUCOVORIN\LEUCOVORIN CALCIUM
     Indication: Adenocarcinoma gastric
     Dosage: 200MG/M2; D1/D15/D29 AND D43 PRE AND POST OP
     Route: 042
     Dates: start: 20240212
  8. FLUOROURACIL [Suspect]
     Active Substance: FLUOROURACIL
     Indication: Adenocarcinoma gastric
     Dosage: 2600MG/M2; D1/D15/D29 AND D43 PRE AND POST OP
     Route: 042
     Dates: start: 20240212
  9. DOCETAXEL [Suspect]
     Active Substance: DOCETAXEL\DOCETAXEL ANHYDROUS
     Indication: Adenocarcinoma gastric
     Dosage: 50MG/M2; D1/D15/D29 AND D43 PRE AND POST OP
     Route: 042
     Dates: start: 20240212

REACTIONS (2)
  - Shock haemorrhagic [Recovered/Resolved]
  - Pancreatic haemorrhage [Recovered/Resolved]
